FAERS Safety Report 19273047 (Version 6)
Quarter: 2021Q3

REPORT INFORMATION
  Report Type: Spontaneous
  Country: DE (occurrence: DE)
  Receive Date: 20210519
  Receipt Date: 20210709
  Transmission Date: 20211014
  Serious: Yes (Hospitalization, Disabling, Other)
  Sender: FDA-Public Use
  Company Number: DE-BEH-2021131819

PATIENT
  Age: 49 Year
  Sex: Male
  Weight: 85 kg

DRUGS (41)
  1. GAZYVARO [Suspect]
     Active Substance: OBINUTUZUMAB
     Dosage: 1000 MILLIGRAM
     Route: 042
     Dates: start: 20150407
  2. FLUDARABINE [Suspect]
     Active Substance: FLUDARABINE PHOSPHATE
     Dosage: 50 MILLIGRAM
     Route: 042
     Dates: start: 20150115
  3. GAZYVARO [Suspect]
     Active Substance: OBINUTUZUMAB
     Dosage: 1000 MILLIGRAM
     Route: 042
     Dates: start: 20151113
  4. FLUDARABINE [Suspect]
     Active Substance: FLUDARABINE PHOSPHATE
     Dosage: 49.5 MILLIGRAM
     Route: 042
     Dates: start: 20141118
  5. FLUDARABINE [Suspect]
     Active Substance: FLUDARABINE PHOSPHATE
     Dosage: 50 MILLIGRAM
     Route: 042
     Dates: start: 20150113
  6. CYCLOPHOSPHAMID [Suspect]
     Active Substance: CYCLOPHOSPHAMIDE
     Indication: CHRONIC LYMPHOCYTIC LEUKAEMIA
     Dosage: UNK
     Route: 065
     Dates: start: 20141118, end: 20150407
  7. URSOFALK [Suspect]
     Active Substance: URSODIOL
     Indication: DRUG-INDUCED LIVER INJURY
     Dosage: UNK
     Route: 065
     Dates: start: 201602, end: 201603
  8. CIPROFLOXACIN. [Concomitant]
     Active Substance: CIPROFLOXACIN
     Dosage: 500 MILLIGRAM
     Route: 065
  9. GAZYVARO [Suspect]
     Active Substance: OBINUTUZUMAB
     Dosage: 1000 MILLIGRAM
     Route: 042
     Dates: start: 20141216
  10. GAZYVARO [Suspect]
     Active Substance: OBINUTUZUMAB
     Dosage: 100 MILLIGRAM
     Route: 042
     Dates: start: 20141118, end: 20150407
  11. FLUDARABINE [Suspect]
     Active Substance: FLUDARABINE PHOSPHATE
     Indication: CHRONIC LYMPHOCYTIC LEUKAEMIA
     Dosage: UNK
     Route: 065
     Dates: start: 20141118, end: 20150407
  12. FLUDARABINE [Suspect]
     Active Substance: FLUDARABINE PHOSPHATE
     Dosage: 49.5 MILLIGRAM
     Route: 042
     Dates: start: 20141119
  13. PRIVIGEN [Suspect]
     Active Substance: HUMAN IMMUNOGLOBULIN G
     Indication: CHRONIC LYMPHOCYTIC LEUKAEMIA
     Dosage: 20 GRAM
     Route: 065
     Dates: start: 20160323
  14. GAZYVARO [Suspect]
     Active Substance: OBINUTUZUMAB
     Indication: CHRONIC LYMPHOCYTIC LEUKAEMIA
     Dosage: UNK
     Route: 042
     Dates: start: 20141118, end: 20150407
  15. CYCLOPHOSPHAMID [Suspect]
     Active Substance: CYCLOPHOSPHAMIDE
     Dosage: 500 MILLIGRAM, 250 MG/M2 SUBSEQUENT DOSE ADMINISTERED ON 14?JAN?2015, 15?JAN?2015
     Route: 042
     Dates: start: 20150113
  16. AMPHOTERICIN [Concomitant]
     Active Substance: AMPHOTERICIN B
     Dosage: 1 DOSAGE FORM, 0.25 DAY
     Route: 065
  17. ALLOPURINOL. [Concomitant]
     Active Substance: ALLOPURINOL
     Dosage: 300 MILLIGRAM, QD
     Route: 065
  18. FLUDARABINE [Suspect]
     Active Substance: FLUDARABINE PHOSPHATE
     Dosage: 25 MG/M2
     Route: 042
     Dates: start: 201502
  19. KEPPRA [Suspect]
     Active Substance: LEVETIRACETAM
     Indication: EPILEPSY
     Dosage: UNK
     Route: 065
     Dates: start: 20160727, end: 20170710
  20. PANTOPRAZOL [Concomitant]
     Active Substance: PANTOPRAZOLE SODIUM
     Route: 065
  21. CALCIUMFOLINAT [Concomitant]
     Active Substance: LEUCOVORIN CALCIUM
     Dosage: 15 MILLIGRAM
     Route: 065
  22. TOPIRAMAT [Suspect]
     Active Substance: TOPIRAMATE
     Indication: EPILEPSY
     Dosage: UNK
     Route: 065
     Dates: end: 20200221
  23. FLUDARABINE [Suspect]
     Active Substance: FLUDARABINE PHOSPHATE
     Dosage: 49.7 MILLIGRAM
     Route: 042
     Dates: start: 20150312
  24. FLUDARABINE [Suspect]
     Active Substance: FLUDARABINE PHOSPHATE
     Dosage: 49.7 MILLIGRAM
     Route: 042
     Dates: start: 20150313
  25. CYCLOPHOSPHAMID [Suspect]
     Active Substance: CYCLOPHOSPHAMIDE
     Dosage: 498 MILLIGRAM, SUBSEQUENT DOSE ADMINISTERED ON 17?DEC?2014
     Route: 042
     Dates: start: 20141216
  26. CYCLOPHOSPHAMID [Suspect]
     Active Substance: CYCLOPHOSPHAMIDE
     Dosage: 497.5 MILLIGRAM, 250 MG/M2 SUBSEQUENT DOSE ADMINISTERED ON 11?MAR?2015, 12?MAR?2015
     Route: 042
     Dates: start: 20150310
  27. KIOVIG [Suspect]
     Active Substance: HUMAN IMMUNOGLOBULIN G
     Indication: IMMUNOGLOBULINS DECREASED
     Route: 065
  28. PREDNISOLONE SODIUM SUCCINATE [Concomitant]
     Active Substance: PREDNISOLONE SODIUM SUCCINATE
     Dosage: UNK
     Route: 065
     Dates: start: 201411
  29. JONOSTERIL [CALCIUM ACETATE;MAGNESIUM ACETATE;POTASSIUM ACETATE;SODIUM [Concomitant]
     Route: 065
  30. DEKRISTOL [Concomitant]
     Active Substance: CHOLECALCIFEROL
     Dosage: 20000 INTERNATIONAL UNIT, QD
     Route: 065
  31. ACICLOVIR [Suspect]
     Active Substance: ACYCLOVIR
     Indication: VARICELLA ZOSTER VIRUS INFECTION
     Dosage: 200 MILLIGRAM, QD
     Route: 065
     Dates: start: 201509
  32. VIMPAT [Suspect]
     Active Substance: LACOSAMIDE
     Indication: EPILEPSY
     Dosage: UNK
     Route: 065
     Dates: end: 20200221
  33. GAZYVARO [Suspect]
     Active Substance: OBINUTUZUMAB
     Dosage: 1000 MILLIGRAM
     Route: 042
     Dates: start: 201502
  34. FLUDARABINE [Suspect]
     Active Substance: FLUDARABINE PHOSPHATE
     Dosage: 49.8 MILLIGRAM
     Route: 042
     Dates: start: 20141216
  35. FLUDARABINE [Suspect]
     Active Substance: FLUDARABINE PHOSPHATE
     Dosage: 50 MILLIGRAM
     Route: 042
     Dates: start: 20150114
  36. FLUDARABINE [Suspect]
     Active Substance: FLUDARABINE PHOSPHATE
     Dosage: 25 MG/M2
     Route: 042
     Dates: start: 20150407
  37. CYCLOPHOSPHAMID [Suspect]
     Active Substance: CYCLOPHOSPHAMIDE
     Dosage: 495 MILLIGRAM
     Route: 042
     Dates: start: 20141118, end: 20150407
  38. CYCLOPHOSPHAMID [Suspect]
     Active Substance: CYCLOPHOSPHAMIDE
     Dosage: 250 MILLIGRAM/SQ. METER, SUBSEQUENT DOSE WERE ADMINISTERED ON 07?APR?2015
     Route: 042
     Dates: start: 201502
  39. GAZYVARO [Suspect]
     Active Substance: OBINUTUZUMAB
     Dosage: 1000 MILLIGRAM
     Route: 042
     Dates: start: 20150310
  40. FLUDARABINE [Suspect]
     Active Substance: FLUDARABINE PHOSPHATE
     Dosage: 49.7 MILLIGRAM
     Route: 042
     Dates: start: 20150310
  41. CYCLOPHOSPHAMID [Suspect]
     Active Substance: CYCLOPHOSPHAMIDE
     Dosage: 495 MILLIGRAM
     Route: 042
     Dates: start: 20141119

REACTIONS (77)
  - Retinitis viral [Recovered/Resolved]
  - Blindness unilateral [Not Recovered/Not Resolved]
  - Toxoplasmosis [Recovered/Resolved with Sequelae]
  - Pneumonia [Unknown]
  - Weight decreased [Not Recovered/Not Resolved]
  - Cough [Recovered/Resolved]
  - Fungal infection [Unknown]
  - Liver function test increased [Not Recovered/Not Resolved]
  - Cataract subcapsular [Unknown]
  - Dermatitis atopic [Unknown]
  - Pyrexia [Recovered/Resolved]
  - Taste disorder [Unknown]
  - Vitamin D deficiency [Unknown]
  - Depression [Unknown]
  - Osteoarthritis [Not Recovered/Not Resolved]
  - Febrile neutropenia [Unknown]
  - Varicella zoster virus infection [Recovered/Resolved]
  - Hemiparesis [Recovering/Resolving]
  - Gastrointestinal disorder [Unknown]
  - Rectal tenesmus [Unknown]
  - Nephropathy toxic [Unknown]
  - Dry mouth [Unknown]
  - Eructation [Unknown]
  - Pancytopenia [Unknown]
  - Respiratory failure [Unknown]
  - Drug-induced liver injury [Not Recovered/Not Resolved]
  - Pain [Unknown]
  - Hypersensitivity [Recovered/Resolved]
  - Enterococcal infection [Unknown]
  - Mucosal disorder [Unknown]
  - Syncope [Unknown]
  - Back pain [Unknown]
  - Decreased appetite [Unknown]
  - Ear infection [Unknown]
  - Encephalitis [Unknown]
  - Necrotising retinitis [Unknown]
  - Impulse-control disorder [Recovered/Resolved]
  - Leukopenia [Unknown]
  - Nausea [Unknown]
  - Pruritus [Unknown]
  - Dehydration [Recovered/Resolved]
  - Muscle twitching [Unknown]
  - Eczema [Unknown]
  - Urge incontinence [Not Recovered/Not Resolved]
  - Pain [Unknown]
  - Superinfection [Unknown]
  - Colitis [Recovered/Resolved]
  - Drug hypersensitivity [Unknown]
  - Large intestinal stenosis [Recovered/Resolved]
  - Diarrhoea [Recovered/Resolved]
  - Neutropenia [Unknown]
  - Affective disorder [Unknown]
  - Febrile infection [Recovered/Resolved]
  - Pollakiuria [Not Recovered/Not Resolved]
  - Rhinorrhoea [Unknown]
  - Abdominal pain [Unknown]
  - Abdominal pain upper [Unknown]
  - Dizziness [Unknown]
  - Eye irritation [Unknown]
  - Benign prostatic hyperplasia [Unknown]
  - Adjustment disorder [Unknown]
  - Bladder hypertrophy [Unknown]
  - Organic brain syndrome [Unknown]
  - Initial insomnia [Unknown]
  - Gallbladder polyp [Unknown]
  - Pruritus allergic [Unknown]
  - Blood pressure increased [Recovered/Resolved]
  - Basal cell carcinoma [Not Recovered/Not Resolved]
  - Folliculitis [Unknown]
  - Oedema peripheral [Unknown]
  - Myelosuppression [Unknown]
  - Epilepsy [Not Recovered/Not Resolved]
  - Central nervous system lesion [Not Recovered/Not Resolved]
  - Blepharospasm [Recovered/Resolved]
  - Parosmia [Unknown]
  - Peroneal nerve palsy [Unknown]
  - Skin cancer [Unknown]

NARRATIVE: CASE EVENT DATE: 2016
